FAERS Safety Report 7369905-6 (Version None)
Quarter: 2011Q1

REPORT INFORMATION
  Report Type: 
  Country: None (occurrence: None)
  Receive Date: 20110323
  Receipt Date: 20110321
  Transmission Date: 20110831
  Serious: Yes (Life-Threatening, Hospitalization)
  Sender: FDA-Public Use
  Company Number: US-B.I. PHARMACEUTICALS,INC./RIDGEFIELD-2011-BP-00652BP

PATIENT
  Age: 81 Year
  Sex: Male
  Weight: 71.2 kg

DRUGS (8)
  1. CATAPRES [Concomitant]
  2. PRADAXA [Suspect]
     Indication: ATRIAL FIBRILLATION
     Dosage: 300 MG
     Dates: start: 20101223, end: 20101225
  3. ALLOPURINOL [Concomitant]
  4. METOPROLOL [Concomitant]
  5. CARDIZEM [Concomitant]
  6. HYDRALAZINE HCL [Concomitant]
  7. MICARDIS [Concomitant]
  8. LIPITOR [Concomitant]

REACTIONS (6)
  - BLOOD CREATININE INCREASED [None]
  - DYSPNOEA [None]
  - BLOOD CREATININE DECREASED [None]
  - PULMONARY HAEMORRHAGE [None]
  - INTERNATIONAL NORMALISED RATIO INCREASED [None]
  - BLOOD UREA ABNORMAL [None]
